FAERS Safety Report 4481209-8 (Version None)
Quarter: 2004Q3

REPORT INFORMATION
  Report Type: 
  Country: None (occurrence: None)
  Receive Date: 20040923
  Receipt Date: 20040621
  Transmission Date: 20050211
  Serious: No
  Sender: FDA-Public Use
  Company Number: USA040156028

PATIENT
  Age: 81 Year
  Sex: Female
  Weight: 77 kg

DRUGS (9)
  1. FORTEO [Suspect]
     Indication: OSTEOPOROSIS
     Dosage: 20 UG DAY
     Dates: start: 20031224
  2. CALCIUM WITH VITAMIN D [Concomitant]
  3. LEVOTHROID [Concomitant]
  4. MULTIVITAMIN [Concomitant]
  5. MUSCLE CRAMP [Concomitant]
  6. ASTHENIA [Concomitant]
  7. INJECTION SITE BRUISING [Concomitant]
  8. INJECTION SITE HAEMORRHAGE [Concomitant]
  9. INJECTION SITE BURNING [Concomitant]

REACTIONS (5)
  - ASTHENIA [None]
  - DIZZINESS [None]
  - HEADACHE [None]
  - MUSCLE CRAMP [None]
  - NAUSEA [None]
